FAERS Safety Report 10466467 (Version 2)
Quarter: 2014Q3

REPORT INFORMATION
  Report Type: Spontaneous
  Country: JP (occurrence: JP)
  Receive Date: 20140922
  Receipt Date: 20140922
  Transmission Date: 20150326
  Serious: Yes (Hospitalization, Other)
  Sender: FDA-Public Use
  Company Number: PHHY2014JP094212

PATIENT
  Age: 81 Year
  Sex: Male
  Weight: 47 kg

DRUGS (2)
  1. AFINITOR [Suspect]
     Active Substance: EVEROLIMUS
     Indication: METASTATIC RENAL CELL CARCINOMA
     Dosage: 10 MG, DAILY
     Route: 048
     Dates: start: 20131219, end: 20140701
  2. HARNAL [Concomitant]
     Active Substance: TAMSULOSIN HYDROCHLORIDE
     Indication: BENIGN PROSTATIC HYPERPLASIA
     Dosage: 0.2 MG, UNK
     Route: 048
     Dates: start: 20140129

REACTIONS (9)
  - Interstitial lung disease [Recovered/Resolved]
  - Cell marker increased [Unknown]
  - Cough [Unknown]
  - Haemoglobin decreased [Unknown]
  - Asthenia [Unknown]
  - Pneumonia [Unknown]
  - Blood alkaline phosphatase decreased [Unknown]
  - Dyspnoea [Unknown]
  - Pyrexia [Unknown]

NARRATIVE: CASE EVENT DATE: 20140630
